FAERS Safety Report 5766081-8 (Version None)
Quarter: 2008Q2

REPORT INFORMATION
  Report Type: 
  Country: None (occurrence: None)
  Receive Date: 20080611
  Receipt Date: 20080610
  Transmission Date: 20081010
  Serious: Yes (Hospitalization)
  Sender: FDA-Public Use
  Company Number: US-RB-001837-08

PATIENT
  Sex: Male
  Weight: 105.75 kg

DRUGS (3)
  1. SUBOXONE [Suspect]
     Route: 060
     Dates: start: 20080523
  2. WELLBUTRIN [Concomitant]
     Indication: DEPRESSION
     Route: 048
  3. LISINOPRIL [Concomitant]
     Indication: HYPERTENSION
     Dosage: DOSE UNKNOWN
     Route: 048
     Dates: start: 20060101

REACTIONS (2)
  - ASTHENIA [None]
  - BRADYCARDIA [None]
